FAERS Safety Report 15573874 (Version 1)
Quarter: 2018Q4

REPORT INFORMATION
  Report Type: Spontaneous
  Country: US (occurrence: US)
  Receive Date: 20181026
  Receipt Date: 20181026
  Transmission Date: 20190205
  Serious: No
  Sender: FDA-Public Use
  Company Number: None

PATIENT
  Age: 31 Year
  Sex: Female
  Weight: 53.07 kg

DRUGS (2)
  1. BUPRENORPHINE /NALOXONE TABLETS 8-2MG [Suspect]
     Active Substance: BUPRENORPHINE\NALOXONE
     Indication: DRUG DEPENDENCE
  2. BUPRENORPHINE /NALOXONE TABLETS 8-2MG [Suspect]
     Active Substance: BUPRENORPHINE\NALOXONE
     Indication: DRUG ABUSE
     Dates: start: 20181025

REACTIONS (3)
  - Stomatitis [None]
  - Oral pain [None]
  - Nausea [None]

NARRATIVE: CASE EVENT DATE: 20181025
